FAERS Safety Report 13098954 (Version 1)
Quarter: 2017Q1

REPORT INFORMATION
  Report Type: Spontaneous
  Country: US (occurrence: US)
  Receive Date: 20170109
  Receipt Date: 20170109
  Transmission Date: 20170428
  Serious: No
  Sender: FDA-Public Use
  Company Number: US-BIOMARINAP-US-2016-112256

PATIENT
  Sex: Female
  Weight: 13 kg

DRUGS (1)
  1. VIMIZIM [Suspect]
     Active Substance: ELOSULFASE ALFA
     Indication: PRODUCT USED FOR UNKNOWN INDICATION
     Dosage: UNK, QW
     Route: 042
     Dates: start: 20140514

REACTIONS (4)
  - Pyrexia [Unknown]
  - Vomiting [Unknown]
  - Hyperphagia [Unknown]
  - Abdominal pain upper [Unknown]
